FAERS Safety Report 4539812-2 (Version None)
Quarter: 2004Q4

REPORT INFORMATION
  Report Type: 
  Country: None (occurrence: None)
  Receive Date: 20041222
  Receipt Date: 20041209
  Transmission Date: 20050328
  Serious: Yes (Hospitalization)
  Sender: FDA-Public Use
  Company Number: 2004-05195

PATIENT
  Age: 69 Year
  Sex: Male
  Weight: 72.6 kg

DRUGS (5)
  1. PREDNISONE [Suspect]
     Indication: RESPIRATORY DISORDER
     Dosage: SEE IMAGE
     Route: 048
     Dates: start: 20031101, end: 20031101
  2. PREDNISONE [Suspect]
     Indication: RESPIRATORY DISORDER
     Dosage: SEE IMAGE
     Route: 048
     Dates: start: 20040701, end: 20040701
  3. COMBIVENT [Concomitant]
  4. FLOVENT [Concomitant]
  5. PAXIL (PAROXETINE HYDROCHLRIDE) [Concomitant]

REACTIONS (10)
  - ASTHENIA [None]
  - DRUG DEPENDENCE [None]
  - DRUG WITHDRAWAL SYNDROME [None]
  - DYSKINESIA [None]
  - DYSPNOEA [None]
  - HEARING IMPAIRED [None]
  - MEDICATION ERROR [None]
  - PNEUMONIA [None]
  - TINNITUS [None]
  - WEIGHT DECREASED [None]
